FAERS Safety Report 7501075-3 (Version None)
Quarter: 2011Q2

REPORT INFORMATION
  Report Type: 
  Country: None (occurrence: None)
  Receive Date: 20110524
  Receipt Date: 20100611
  Transmission Date: 20111010
  Serious: No
  Sender: FDA-Public Use
  Company Number: US-NOVEN-ALL1-2010-03381

PATIENT

DRUGS (2)
  1. DAYTRANA [Suspect]
     Dosage: UNK MG, 1X/DAY:QD, APPLIED ONE 10 MG AND ONE HALF OF A CUT 10 MG PATCH
     Route: 062
     Dates: start: 20100607, end: 20100607
  2. DAYTRANA [Suspect]
     Dosage: UNK MG, 1X/DAY:QD, APPLIED ONE 10 MG AND ONE QUARTER OF A CUT 10 MG PATCH
     Route: 062
     Dates: start: 20100608

REACTIONS (2)
  - WRONG TECHNIQUE IN DRUG USAGE PROCESS [None]
  - INSOMNIA [None]
